FAERS Safety Report 25940111 (Version 1)
Quarter: 2025Q4

REPORT INFORMATION
  Report Type: Spontaneous
  Country: GB (occurrence: GB)
  Receive Date: 20251020
  Receipt Date: 20251020
  Transmission Date: 20260118
  Serious: Yes (Hospitalization)
  Sender: MERCK SHARP & DOHME LLC
  Company Number: GB-009507513-2341029

PATIENT
  Sex: Female

DRUGS (1)
  1. ZEPATIER [Suspect]
     Active Substance: ELBASVIR\GRAZOPREVIR
     Indication: Hepatitis C
     Dosage: STRENGTH: 50MG/100MG, 28 TABLET 2 X 14 TABLETS
     Route: 048
     Dates: start: 20250825

REACTIONS (1)
  - Mental disorder [Unknown]

NARRATIVE: CASE EVENT DATE: 20250101
